FAERS Safety Report 19293128 (Version 2)
Quarter: 2021Q3

REPORT INFORMATION
  Report Type: Other
  Country: CA (occurrence: CA)
  Receive Date: 20210524
  Receipt Date: 20210923
  Transmission Date: 20211014
  Serious: Yes (Death)
  Sender: FDA-Public Use
  Company Number: CA-GUARDIAN DRUG COMPANY-2111860

PATIENT

DRUGS (2)
  1. INDOMETHACIN. [Suspect]
     Active Substance: INDOMETHACIN
     Route: 064
  2. CHILDRENS IBUPROFEN [Suspect]
     Active Substance: IBUPROFEN
     Route: 064

REACTIONS (1)
  - Foetal exposure during pregnancy [Fatal]
